FAERS Safety Report 7040670-5 (Version None)
Quarter: 2010Q4

REPORT INFORMATION
  Report Type: 
  Country: None (occurrence: None)
  Receive Date: 20101013
  Receipt Date: 20101006
  Transmission Date: 20110411
  Serious: Yes (Hospitalization)
  Sender: FDA-Public Use
  Company Number: DE-AMGEN-QUU442198

PATIENT
  Sex: Male
  Weight: 72 kg

DRUGS (7)
  1. ENBREL [Suspect]
     Indication: RHEUMATOID ARTHRITIS
     Route: 058
     Dates: start: 20100804, end: 20100804
  2. PREDNISOLONE [Concomitant]
     Indication: RHEUMATOID ARTHRITIS
     Dosage: 7.5 - 30 MG DAILY
     Route: 048
  3. PANTOPRAZOLE [Concomitant]
  4. CALCIUM [Concomitant]
  5. COLECALCIFEROL [Concomitant]
  6. METHOTREXATE SODIUM [Concomitant]
     Indication: RHEUMATOID ARTHRITIS
     Route: 065
     Dates: start: 20070401
  7. FOLIC ACID [Concomitant]

REACTIONS (1)
  - CONVULSION [None]
